FAERS Safety Report 4767096-9 (Version None)
Quarter: 2005Q3

REPORT INFORMATION
  Report Type: 
  Country: None (occurrence: None)
  Receive Date: 20050906
  Receipt Date: 20050823
  Transmission Date: 20060218
  Serious: Yes (Other)
  Sender: FDA-Public Use
  Company Number: HQWYE191830AUG05

PATIENT
  Age: 17 Month
  Sex: Male

DRUGS (1)
  1. REFACTO [Suspect]
     Indication: FACTOR VIII DEFICIENCY
     Dosage: UNSPECIFIED DOSE ON DEMAND

REACTIONS (1)
  - ANTI FACTOR VIII ANTIBODY POSITIVE [None]
